FAERS Safety Report 6264840-9 (Version None)
Quarter: 2009Q3

REPORT INFORMATION
  Report Type: 
  Country: None (occurrence: None)
  Receive Date: 20090710
  Receipt Date: 20090626
  Transmission Date: 20100115
  Serious: Yes (Death)
  Sender: FDA-Public Use
  Company Number: DE-GENENTECH-280214

PATIENT
  Sex: Male

DRUGS (2)
  1. RANIBIZUMAB [Suspect]
     Indication: MACULAR DEGENERATION
     Dosage: 0.05 ML, UNK
     Route: 031
     Dates: start: 20080818, end: 20080919
  2. RANIBIZUMAB [Suspect]
     Dosage: 0.05 ML, UNK
     Route: 031
     Dates: start: 20080919

REACTIONS (4)
  - METAMORPHOPSIA [None]
  - MULTI-ORGAN FAILURE [None]
  - URINARY TRACT NEOPLASM [None]
  - VISUAL ACUITY REDUCED [None]
